FAERS Safety Report 16436909 (Version 2)
Quarter: 2019Q4

REPORT INFORMATION
  Report Type: Spontaneous
  Country: US (occurrence: US)
  Receive Date: 20190614
  Receipt Date: 20191127
  Transmission Date: 20200122
  Serious: No
  Sender: FDA-Public Use
  Company Number: PHHY2019US133948

PATIENT
  Sex: Female

DRUGS (1)
  1. GENTEAL MODERATE TO SEVERE GEL DROPS [Suspect]
     Active Substance: CARBOXYMETHYLCELLULOSE SODIUM\HYPROMELLOSES
     Indication: PRODUCT USED FOR UNKNOWN INDICATION
     Route: 065

REACTIONS (4)
  - Ocular hyperaemia [Unknown]
  - Foreign body sensation in eyes [Unknown]
  - Product quality issue [Unknown]
  - Eye irritation [Unknown]
